FAERS Safety Report 11866840 (Version 1)
Quarter: 2015Q4

REPORT INFORMATION
  Report Type: Report from Study
  Country: PL (occurrence: PL)
  Receive Date: 20151224
  Receipt Date: 20151224
  Transmission Date: 20160305
  Serious: Yes (Other)
  Sender: FDA-Public Use
  Company Number: PHHY2015PL168227

PATIENT
  Age: 58 Year
  Sex: Female

DRUGS (1)
  1. TASIGNA [Suspect]
     Active Substance: NILOTINIB
     Indication: CHRONIC MYELOID LEUKAEMIA
     Dosage: 400 MG, BID
     Route: 065
     Dates: start: 20150604

REACTIONS (5)
  - Breath sounds abnormal [Unknown]
  - Weight decreased [Unknown]
  - Thrombocytopenia [Unknown]
  - Granulocytopenia [Unknown]
  - Haematotoxicity [Unknown]
